FAERS Safety Report 10911333 (Version 3)
Quarter: 2016Q1

REPORT INFORMATION
  Report Type: Spontaneous
  Country: DK (occurrence: DK)
  Receive Date: 20150313
  Receipt Date: 20160217
  Transmission Date: 20160525
  Serious: Yes (Hospitalization)
  Sender: FDA-Public Use
  Company Number: DK-ABBVIE-15K-044-1357323-00

PATIENT
  Age: 64 Year
  Sex: Male

DRUGS (22)
  1. BETNOVAT MED CHINOFORM [Concomitant]
     Indication: ECZEMA INFECTED
     Dates: start: 20140410
  2. OXYCONTIN [Concomitant]
     Active Substance: OXYCODONE HYDROCHLORIDE
     Indication: PAIN
     Dates: start: 20150206
  3. ALPROSTADIL. [Concomitant]
     Active Substance: ALPROSTADIL
     Indication: ERECTILE DYSFUNCTION
     Dates: start: 20140422
  4. EMPERAL [Concomitant]
     Active Substance: METOCLOPRAMIDE HYDROCHLORIDE
     Indication: NAUSEA
     Dates: start: 20140422
  5. DALACIN [Concomitant]
     Active Substance: CLINDAMYCIN\CLINDAMYCIN PHOSPHATE
     Indication: INFECTION
     Dates: start: 20140410
  6. GLIMEPIRIDE. [Concomitant]
     Active Substance: GLIMEPIRIDE
     Indication: TYPE 2 DIABETES MELLITUS
     Dates: start: 20140211, end: 20150218
  7. LOSARTAN BLUEFISH [Concomitant]
     Active Substance: LOSARTAN
     Indication: RENAL DISORDER
     Dates: start: 20141007, end: 20150218
  8. DIAZEPAM. [Concomitant]
     Active Substance: DIAZEPAM
     Indication: RESTLESSNESS
     Dates: start: 20140422
  9. OXYNORM [Concomitant]
     Active Substance: OXYCODONE HYDROCHLORIDE
     Indication: PAIN
     Dates: start: 20150206
  10. PANODIL [Concomitant]
     Active Substance: ACETAMINOPHEN
     Indication: PAIN
     Dates: start: 20150206
  11. VIZARSIN [Concomitant]
     Indication: ERECTILE DYSFUNCTION
     Dates: start: 20140422
  12. HUMIRA [Suspect]
     Active Substance: ADALIMUMAB
     Indication: HIDRADENITIS
     Route: 065
     Dates: start: 20140410, end: 20150225
  13. DIGOXIN. [Concomitant]
     Active Substance: DIGOXIN
     Indication: HEART RATE IRREGULAR
     Dates: start: 20150123, end: 20150218
  14. DERMOVAT [Concomitant]
     Active Substance: CLOBETASOL
     Indication: ECZEMA
     Dates: start: 20141110
  15. KOFFEIN-FENAZON [Concomitant]
     Indication: PAIN
     Dates: start: 20150123
  16. METOPROLOL SUCCINATE. [Concomitant]
     Active Substance: METOPROLOL SUCCINATE
     Indication: HEART RATE IRREGULAR
     Dates: start: 20150206
  17. HUMIRA [Suspect]
     Active Substance: ADALIMUMAB
     Indication: OFF LABEL USE
  18. LANSOPRAZOLE. [Concomitant]
     Active Substance: LANSOPRAZOLE
     Indication: GASTROOESOPHAGEAL REFLUX DISEASE
     Dates: start: 20140422
  19. ELIQUIS [Suspect]
     Active Substance: APIXABAN
     Indication: THROMBOSIS PROPHYLAXIS
     Route: 065
     Dates: start: 20150123, end: 20150218
  20. LAMICTAL [Concomitant]
     Active Substance: LAMOTRIGINE
     Indication: PROPHYLAXIS
     Dates: start: 20140422
  21. ZOPICLONE [Concomitant]
     Active Substance: ZOPICLONE
     Indication: INSOMNIA
     Dates: start: 20140422
  22. CALCIUM [Concomitant]
     Active Substance: CALCIUM
     Indication: PRODUCT USED FOR UNKNOWN INDICATION

REACTIONS (5)
  - Acute kidney injury [Recovered/Resolved]
  - Off label use [Unknown]
  - Dialysis [Unknown]
  - Ultrasound kidney abnormal [Unknown]
  - Metabolic acidosis [Recovered/Resolved]

NARRATIVE: CASE EVENT DATE: 201502
